FAERS Safety Report 14123789 (Version 1)
Quarter: 2017Q4

REPORT INFORMATION
  Report Type: Spontaneous
  Country: US (occurrence: None)
  Receive Date: 20171025
  Receipt Date: 20171025
  Transmission Date: 20180321
  Serious: Yes (Hospitalization)
  Sender: FDA-Public Use
  Company Number: None

PATIENT
  Age: 58 Year
  Sex: Female

DRUGS (7)
  1. IMATINIB [Suspect]
     Active Substance: IMATINIB
     Indication: NEOPLASM MALIGNANT
     Route: 048
     Dates: start: 20160225
  2. VITAMIN B12 [Concomitant]
     Active Substance: CYANOCOBALAMIN
  3. PRILOSEC [Concomitant]
     Active Substance: OMEPRAZOLE MAGNESIUM
  4. CLARITIN [Concomitant]
     Active Substance: LORATADINE
  5. MULTI VIT [Concomitant]
  6. MOTRIN [Concomitant]
     Active Substance: IBUPROFEN
  7. VALIUM [Concomitant]
     Active Substance: DIAZEPAM

REACTIONS (1)
  - Hysterectomy [None]

NARRATIVE: CASE EVENT DATE: 201710
